FAERS Safety Report 11080210 (Version 1)
Quarter: 2015Q2

REPORT INFORMATION
  Report Type: Spontaneous
  Country: US (occurrence: US)
  Receive Date: 20150430
  Receipt Date: 20150430
  Transmission Date: 20150821
  Serious: Yes (Other)
  Sender: FDA-Public Use
  Company Number: US-CELGENEUS-USA-2015045612

PATIENT
  Age: 72 Year
  Sex: Male

DRUGS (4)
  1. THALOMID [Suspect]
     Active Substance: THALIDOMIDE
     Indication: PLASMA CELL MYELOMA
     Route: 065
     Dates: start: 201212
  2. THALOMID [Suspect]
     Active Substance: THALIDOMIDE
     Route: 065
     Dates: start: 201301
  3. THALOMID [Suspect]
     Active Substance: THALIDOMIDE
     Route: 065
     Dates: start: 20140730
  4. THALOMID [Suspect]
     Active Substance: THALIDOMIDE
     Route: 065
     Dates: start: 201401

REACTIONS (2)
  - Dizziness [Unknown]
  - Asthenia [Unknown]

NARRATIVE: CASE EVENT DATE: 201503
